FAERS Safety Report 11419494 (Version 1)
Quarter: 2015Q3

REPORT INFORMATION
  Report Type: Report from Study
  Country: SG (occurrence: SG)
  Receive Date: 20150826
  Receipt Date: 20150826
  Transmission Date: 20151125
  Serious: Yes (Hospitalization)
  Sender: FDA-Public Use
  Company Number: SG-SA-2014SA031437

PATIENT
  Age: 55 Year
  Sex: Male
  Weight: 64 kg

DRUGS (24)
  1. 5 FU [Suspect]
     Active Substance: FLUOROURACIL
     Indication: COLORECTAL CANCER METASTATIC
     Route: 041
     Dates: start: 20140304, end: 20140306
  2. FILGRASTIM [Concomitant]
     Active Substance: FILGRASTIM
     Dates: start: 20140228, end: 20140302
  3. TRIMETAZIDINE HYDROCHLORIDE [Concomitant]
     Active Substance: TRIMETAZIDINE DIHYDROCHLORIDE
     Dates: start: 20140310, end: 20140310
  4. LEUCOVORIN. [Suspect]
     Active Substance: LEUCOVORIN
     Indication: COLORECTAL CANCER METASTATIC
     Route: 041
     Dates: start: 20130513, end: 20130513
  5. 5 FU [Suspect]
     Active Substance: FLUOROURACIL
     Indication: COLORECTAL CANCER METASTATIC
     Route: 040
     Dates: start: 20130513, end: 20130513
  6. IRINOTECAN [Suspect]
     Active Substance: IRINOTECAN
     Indication: COLORECTAL CANCER METASTATIC
     Route: 041
     Dates: start: 20130513, end: 20130513
  7. IRINOTECAN [Suspect]
     Active Substance: IRINOTECAN
     Indication: COLORECTAL CANCER METASTATIC
     Route: 041
     Dates: start: 20140304, end: 20140304
  8. FILGRASTIM [Concomitant]
     Active Substance: FILGRASTIM
     Dates: start: 20140314, end: 20140316
  9. ONDANSETRON [Concomitant]
     Active Substance: ONDANSETRON
     Dates: start: 20140304, end: 20140304
  10. ATROPINE. [Concomitant]
     Active Substance: ATROPINE
     Dates: start: 20140304, end: 20140304
  11. MINERALS NOS/VITAMINS NOS/AMINO ACIDS NOS [Concomitant]
     Dates: start: 20131216, end: 20140317
  12. LACTOFERRIN [Concomitant]
     Active Substance: LACTOFERRIN
     Route: 048
     Dates: start: 20131021, end: 20140707
  13. BENZYDAMINE HYDROCHLORIDE [Concomitant]
     Active Substance: BENZYDAMINE HYDROCHLORIDE
     Dates: start: 20131230, end: 20140317
  14. 5 FU [Suspect]
     Active Substance: FLUOROURACIL
     Indication: COLORECTAL CANCER METASTATIC
     Route: 041
     Dates: start: 20130513, end: 20130515
  15. DEXAMETHASONE. [Concomitant]
     Active Substance: DEXAMETHASONE
     Dates: start: 20140304, end: 20140304
  16. PARACETAMOL [Concomitant]
     Active Substance: ACETAMINOPHEN
     Dates: start: 20140310, end: 20140310
  17. UREA. [Concomitant]
     Active Substance: UREA
     Route: 061
     Dates: start: 20140113
  18. FAMOTIDINE. [Concomitant]
     Active Substance: FAMOTIDINE
     Dates: start: 20140308, end: 20140310
  19. 5 FU [Suspect]
     Active Substance: FLUOROURACIL
     Indication: COLORECTAL CANCER METASTATIC
     Route: 040
     Dates: start: 20140304, end: 20140304
  20. LEUCOVORIN. [Suspect]
     Active Substance: LEUCOVORIN
     Indication: COLORECTAL CANCER METASTATIC
     Route: 041
     Dates: start: 20140304, end: 20140304
  21. SIMVASTATIN. [Concomitant]
     Active Substance: SIMVASTATIN
     Dates: start: 20140308, end: 20140310
  22. ANTISEPTICS [Concomitant]
     Active Substance: UNSPECIFIED INGREDIENT
     Dates: start: 20140127, end: 20140317
  23. AFLIBERCEPT [Suspect]
     Active Substance: AFLIBERCEPT
     Indication: COLORECTAL CANCER METASTATIC
     Route: 041
     Dates: start: 20140304, end: 20140304
  24. HEPARIN SODIUM. [Concomitant]
     Active Substance: HEPARIN SODIUM
     Route: 065
     Dates: start: 20140306, end: 20140306

REACTIONS (2)
  - Acute coronary syndrome [Recovered/Resolved]
  - Depression [Recovered/Resolved]

NARRATIVE: CASE EVENT DATE: 20140308
